FAERS Safety Report 7784862-6 (Version None)
Quarter: 2011Q3

REPORT INFORMATION
  Report Type: 
  Country: None (occurrence: None)
  Receive Date: 20110928
  Receipt Date: 20110922
  Transmission Date: 20111222
  Serious: Yes (Hospitalization, Other)
  Sender: FDA-Public Use
  Company Number: US-PFIZER INC-2005130534

PATIENT
  Sex: Male
  Weight: 63.5 kg

DRUGS (5)
  1. CELEXA [Concomitant]
     Dosage: 60 MILLIGRAMS DAILY
     Dates: start: 20040101, end: 20050101
  2. NEURONTIN [Suspect]
     Dosage: 4800 MG DAILY AT BEDTIME
     Route: 048
  3. NEURONTIN [Suspect]
     Indication: RESTLESS LEGS SYNDROME
     Dosage: 600 MG, DAILY
     Route: 048
     Dates: start: 20040201
  4. NEURONTIN [Suspect]
     Indication: MOVEMENT DISORDER
     Dosage: 300 MG DAILY
     Route: 048
     Dates: start: 20040201, end: 20050201
  5. LIPITOR [Suspect]
     Indication: BLOOD CHOLESTEROL INCREASED
     Dosage: 10 MG DAILY
     Dates: start: 20030101

REACTIONS (20)
  - DYSPHEMIA [None]
  - ILLUSION [None]
  - AFFECT LABILITY [None]
  - DRUG INEFFECTIVE [None]
  - COMPULSIONS [None]
  - DELUSION [None]
  - BIPOLAR II DISORDER [None]
  - MENTAL DISORDER [None]
  - HYPERKINESIA [None]
  - HOSTILITY [None]
  - MOVEMENT DISORDER [None]
  - MANIA [None]
  - PARANOIA [None]
  - HOMELESS [None]
  - ABNORMAL DREAMS [None]
  - THINKING ABNORMAL [None]
  - ADVERSE DRUG REACTION [None]
  - DISTURBANCE IN ATTENTION [None]
  - AGGRESSION [None]
  - NERVOUS SYSTEM DISORDER [None]
